FAERS Safety Report 12421733 (Version 1)
Quarter: 2016Q2

REPORT INFORMATION
  Report Type: Spontaneous
  Country: IT (occurrence: IT)
  Receive Date: 20160531
  Receipt Date: 20160531
  Transmission Date: 20160815
  Serious: Yes (Hospitalization)
  Sender: FDA-Public Use
  Company Number: IT-FRESENIUS KABI-FK201602975

PATIENT
  Age: 75 Year
  Sex: Male

DRUGS (5)
  1. LINEZOLID (MANUFACTURER UNKNOWN) [Suspect]
     Active Substance: LINEZOLID
     Indication: PNEUMONIA
     Route: 065
     Dates: start: 20160318, end: 20160321
  2. MACLADIN [Suspect]
     Active Substance: CLARITHROMYCIN
     Indication: PNEUMONIA
     Dates: start: 20160318, end: 20160324
  3. TAVOR (LORAZEPAM) [Concomitant]
     Active Substance: LORAZEPAM
     Dates: end: 20160225
  4. TAZOCIN [Concomitant]
     Active Substance: PIPERACILLIN SODIUM\TAZOBACTAM SODIUM
     Indication: PNEUMONIA
     Dates: start: 20160226, end: 20160315
  5. LEVOFLOXACIN. [Concomitant]
     Active Substance: LEVOFLOXACIN
     Indication: PNEUMONIA
     Dates: start: 20160229, end: 20160317

REACTIONS (2)
  - Epilepsy [Recovered/Resolved]
  - Disorientation [Recovered/Resolved]

NARRATIVE: CASE EVENT DATE: 20160321
